FAERS Safety Report 8359165-1 (Version None)
Quarter: 2012Q2

REPORT INFORMATION
  Report Type: 
  Country: None (occurrence: None)
  Receive Date: 20120511
  Receipt Date: 20120501
  Transmission Date: 20120825
  Serious: Yes (Other)
  Sender: FDA-Public Use
  Company Number: IMP_05891_2012

PATIENT
  Sex: Female

DRUGS (1)
  1. PYRIDOSTIGMINE BROMIDE [Suspect]
     Indication: PRODUCT USED FOR UNKNOWN INDICATION
     Dosage: (TWO TABLETS PER DAY)

REACTIONS (1)
  - EYE DISORDER [None]
